FAERS Safety Report 8060501-4 (Version None)
Quarter: 2012Q1

REPORT INFORMATION
  Report Type: 
  Country: None (occurrence: None)
  Receive Date: 20120119
  Receipt Date: 20120119
  Transmission Date: 20120608
  Serious: Yes (Other)
  Sender: FDA-Public Use
  Company Number: None

PATIENT
  Sex: Female
  Weight: 54.5 kg

DRUGS (2)
  1. NORTRIPTYLINE HCL [Suspect]
     Indication: HERPES VIRUS INFECTION
     Dosage: 25MG 1X/DAY
     Dates: start: 20111227, end: 20111229
  2. NORTRIPTYLINE HCL [Suspect]
     Indication: PAIN
     Dosage: 25MG 1X/DAY
     Dates: start: 20111227, end: 20111229

REACTIONS (2)
  - CONDITION AGGRAVATED [None]
  - POST HERPETIC NEURALGIA [None]
